FAERS Safety Report 20335456 (Version 2)
Quarter: 2022Q1

REPORT INFORMATION
  Report Type: Spontaneous
  Country: US (occurrence: US)
  Receive Date: 20220114
  Receipt Date: 20220217
  Transmission Date: 20220423
  Serious: No
  Sender: FDA-Public Use
  Company Number: US-JNJFOC-20220108051

PATIENT
  Age: 8 Decade
  Sex: Female

DRUGS (1)
  1. WOMENS ROGAINE UNSCENTED [Suspect]
     Active Substance: MINOXIDIL
     Indication: Alopecia
     Dosage: HALF A CAP FULL
     Route: 061
     Dates: start: 2021, end: 2022

REACTIONS (3)
  - Alopecia [Not Recovered/Not Resolved]
  - Application site pruritus [Recovering/Resolving]
  - Application site hypersensitivity [Recovering/Resolving]

NARRATIVE: CASE EVENT DATE: 20210101
